FAERS Safety Report 11197239 (Version 6)
Quarter: 2018Q4

REPORT INFORMATION
  Report Type: Report from Study
  Country: US (occurrence: US)
  Receive Date: 20150617
  Receipt Date: 20181130
  Transmission Date: 20190204
  Serious: Yes (Hospitalization, Other)
  Sender: FDA-Public Use
  Company Number: US-SA-2015SA009184

PATIENT
  Age: 70 Year
  Sex: Male

DRUGS (1)
  1. IMIGLUCERASE [Suspect]
     Active Substance: IMIGLUCERASE
     Indication: GAUCHER^S DISEASE
     Dosage: 0.92, QOW
     Route: 041
     Dates: start: 20140307

REACTIONS (16)
  - Tendon rupture [Recovering/Resolving]
  - Anaemia [Not Recovered/Not Resolved]
  - Fatigue [Unknown]
  - Dyspnoea exertional [Recovering/Resolving]
  - Positron emission tomogram abnormal [Unknown]
  - Red blood cell count decreased [Not Recovered/Not Resolved]
  - Tremor [Unknown]
  - White blood cell count decreased [Not Recovered/Not Resolved]
  - Haemoglobin abnormal [Not Recovered/Not Resolved]
  - Hypergammaglobulinaemia benign monoclonal [Not Recovered/Not Resolved]
  - Myelodysplastic syndrome [Unknown]
  - Bone infarction [Unknown]
  - Anxiety [Unknown]
  - Plasma cell myeloma [Unknown]
  - Carcinoid tumour [Unknown]
  - Immune system disorder [Unknown]

NARRATIVE: CASE EVENT DATE: 2015
